FAERS Safety Report 14768265 (Version 1)
Quarter: 2018Q2

REPORT INFORMATION
  Report Type: Spontaneous
  Country: US (occurrence: US)
  Receive Date: 20180417
  Receipt Date: 20180417
  Transmission Date: 20180711
  Serious: Yes (Life-Threatening, Hospitalization, Other)
  Sender: FDA-Public Use
  Company Number: US-AUROBINDO-AUR-APL-2018-020284

PATIENT
  Age: 55 Year
  Sex: Male

DRUGS (12)
  1. LASIX [Concomitant]
     Active Substance: FUROSEMIDE
     Indication: CARDIAC FAILURE ACUTE
     Dosage: UNK
     Route: 065
  2. DEXAMETHASONE. [Suspect]
     Active Substance: DEXAMETHASONE
     Indication: PLASMACYTOMA
     Dosage: UNK, CYCLICAL
     Route: 048
  3. OXYGEN. [Concomitant]
     Active Substance: OXYGEN
     Indication: CARDIAC FAILURE ACUTE
     Dosage: UNK
     Route: 065
  4. PLATINOL [Suspect]
     Active Substance: CISPLATIN
     Indication: PLASMA CELL MYELOMA
  5. DEXAMETHASONE. [Suspect]
     Active Substance: DEXAMETHASONE
     Indication: PLASMA CELL MYELOMA
  6. ADRIAMYCIN [Suspect]
     Active Substance: DOXORUBICIN HYDROCHLORIDE
     Indication: PLASMA CELL MYELOMA
  7. VEPESID [Suspect]
     Active Substance: ETOPOSIDE
     Indication: PLASMACYTOMA
  8. CYTOXAN [Suspect]
     Active Substance: CYCLOPHOSPHAMIDE
     Indication: PLASMA CELL MYELOMA
  9. VEPESID [Suspect]
     Active Substance: ETOPOSIDE
     Indication: PLASMA CELL MYELOMA
     Dosage: 40 MILLIGRAM/SQ. METER, CYCLICAL, 4 DAYS
     Route: 042
  10. CYTOXAN [Suspect]
     Active Substance: CYCLOPHOSPHAMIDE
     Indication: PLASMACYTOMA
     Dosage: 400 MILLIGRAM/SQ. METER, CYCLICAL,4 DAYS
     Route: 042
  11. ADRIAMYCIN [Suspect]
     Active Substance: DOXORUBICIN HYDROCHLORIDE
     Indication: PLASMACYTOMA
     Dosage: 5 MILLIGRAM/SQ. METER, CYCLICAL,4 DAYS
     Route: 042
  12. PLATINOL [Suspect]
     Active Substance: CISPLATIN
     Indication: PLASMACYTOMA
     Dosage: 10 MILLIGRAM/SQ. METER, CYCLICAL, 4 DAYS
     Route: 042

REACTIONS (5)
  - Alpha haemolytic streptococcal infection [Unknown]
  - Cardiotoxicity [Unknown]
  - Streptococcal bacteraemia [Unknown]
  - Left ventricular dysfunction [Unknown]
  - Febrile neutropenia [Recovered/Resolved]
